FAERS Safety Report 10226716 (Version 6)
Quarter: 2015Q2

REPORT INFORMATION
  Report Type: Spontaneous
  Country: ES (occurrence: ES)
  Receive Date: 20140610
  Receipt Date: 20150619
  Transmission Date: 20150821
  Serious: Yes (Other)
  Sender: FDA-Public Use
  Company Number: ES-AMGEN INC.-ESPSP2014037855

PATIENT
  Age: 47 Year
  Sex: Female

DRUGS (8)
  1. METHOTREXATE [Concomitant]
     Active Substance: METHOTREXATE
     Dosage: 2.5 MG, 8 TABLETS WEEKLY
     Dates: start: 20150428
  2. VOLTAREN [Concomitant]
     Active Substance: DICLOFENAC SODIUM
     Indication: ANTIINFLAMMATORY THERAPY
     Dosage: 75 MG, EVERY 24 HRS
  3. VOLTAREN [Concomitant]
     Active Substance: DICLOFENAC SODIUM
     Indication: PAIN
  4. METHOTREXATE [Concomitant]
     Active Substance: METHOTREXATE
     Indication: PSORIATIC ARTHROPATHY
     Dosage: 2.5 MG, 4 TABLETS WEEKLY
     Dates: start: 201412
  5. ENBREL [Suspect]
     Active Substance: ETANERCEPT
     Dosage: 50 MG, WEEKLY
     Route: 058
  6. ZAMENE [Concomitant]
     Active Substance: DEFLAZACORT
     Indication: PSORIATIC ARTHROPATHY
     Dosage: 6 MG, 1X/DAY
     Dates: start: 20150428
  7. RANITIDINE [Concomitant]
     Active Substance: RANITIDINE\RANITIDINE HYDROCHLORIDE
     Indication: PROPHYLAXIS AGAINST GASTROINTESTINAL ULCER
     Dosage: 150 MG, 1X/DAY
  8. ENBREL [Suspect]
     Active Substance: ETANERCEPT
     Indication: PSORIATIC ARTHROPATHY
     Dosage: 50 MG, WEEKLY (ON TUESDAYS)
     Route: 058
     Dates: start: 20140415

REACTIONS (7)
  - Fibula fracture [Not Recovered/Not Resolved]
  - Haematoma [Recovering/Resolving]
  - Psoriatic arthropathy [Unknown]
  - Diarrhoea [Not Recovered/Not Resolved]
  - Road traffic accident [Not Recovered/Not Resolved]
  - Finger deformity [Unknown]
  - Inflammation [Not Recovered/Not Resolved]

NARRATIVE: CASE EVENT DATE: 2014
